FAERS Safety Report 10249278 (Version 1)
Quarter: 2014Q2

REPORT INFORMATION
  Report Type: Spontaneous
  Country: US (occurrence: US)
  Receive Date: 20140620
  Receipt Date: 20140620
  Transmission Date: 20141212
  Serious: Yes (Hospitalization)
  Sender: FDA-Public Use
  Company Number: US-BAYER-2014-091982

PATIENT
  Age: 46 Year
  Sex: Female
  Weight: 88.44 kg

DRUGS (7)
  1. YASMIN [Suspect]
     Indication: MENSTRUAL CYCLE MANAGEMENT
     Dosage: UNK
     Dates: start: 20040901, end: 20100203
  2. OCELLA [Suspect]
     Dosage: UNK
     Dates: start: 20081229, end: 20100203
  3. CALCIUM [Concomitant]
     Dosage: UNK
     Dates: start: 20100822, end: 20100911
  4. VITAMIN E [Concomitant]
     Dosage: 400 IU, UNK
     Dates: start: 20100822, end: 20100911
  5. FISH OIL [Concomitant]
     Dosage: 2400 MG, UNK
     Dates: start: 20100822, end: 20100911
  6. TEA, GREEN [Concomitant]
     Dosage: UNK
     Dates: start: 20100822, end: 20100911
  7. CITALOPRAM [Concomitant]
     Indication: ANXIETY
     Dosage: 20 MG, UNK
     Dates: start: 20040517

REACTIONS (10)
  - Intra-abdominal haematoma [None]
  - Intestinal ischaemia [None]
  - Haematochezia [None]
  - Abdominal pain upper [None]
  - Abdominal pain lower [None]
  - Diarrhoea [None]
  - Vomiting [None]
  - Mental disorder [None]
  - Anxiety [None]
  - Emotional distress [None]
